FAERS Safety Report 5441913-1 (Version None)
Quarter: 2007Q3

REPORT INFORMATION
  Report Type: 
  Country: None (occurrence: None)
  Receive Date: 20070904
  Receipt Date: 20070823
  Transmission Date: 20080115
  Serious: Yes (Death, Hospitalization, Other)
  Sender: FDA-Public Use
  Company Number: JP-ELI_LILLY_AND_COMPANY-JP200708000910

PATIENT
  Age: 54 Year
  Sex: Male
  Weight: 57.3 kg

DRUGS (10)
  1. PEMETREXED [Suspect]
     Indication: PLEURAL MESOTHELIOMA MALIGNANT
     Dosage: 785 MG, OTHER
     Route: 042
     Dates: start: 20070528, end: 20070528
  2. CISPLATIN [Suspect]
     Indication: PLEURAL MESOTHELIOMA MALIGNANT
     Dosage: 117 MG, OTHER
     Route: 042
     Dates: start: 20070528, end: 20070528
  3. PANVITAN [Concomitant]
     Dosage: 0.5 MG, DAILY (1/D)
     Route: 048
     Dates: start: 20070521, end: 20070713
  4. METHYCOBAL [Concomitant]
     Dosage: 1 MG, OTHER
     Route: 030
     Dates: start: 20070521, end: 20070521
  5. DECADRON [Concomitant]
     Indication: PROPHYLAXIS
     Dosage: 8 MG, DAILY (1/D)
     Route: 042
     Dates: start: 20070528, end: 20070528
  6. DECADRON [Concomitant]
     Dosage: 2 MG, DAILY (1/D)
     Route: 042
     Dates: start: 20070529, end: 20070601
  7. KYTRIL [Concomitant]
     Indication: PROPHYLAXIS
     Dosage: 3 MG, DAILY (1/D)
     Route: 042
     Dates: start: 20070528, end: 20070601
  8. ADONA [Concomitant]
     Indication: PROPHYLAXIS
     Dosage: 90 MG, DAILY (1/D)
     Route: 048
     Dates: start: 20070528, end: 20070604
  9. TRANSAMIN /JPN/ [Concomitant]
     Indication: PROPHYLAXIS
     Dosage: 750 MG, DAILY (1/D)
     Route: 048
     Dates: start: 20070528, end: 20070604
  10. PRIMPERAN /00041901/ [Concomitant]
     Indication: PROPHYLAXIS
     Dosage: 20 MG, DAILY (1/D)
     Route: 042
     Dates: start: 20070530, end: 20070606

REACTIONS (4)
  - DEATH [None]
  - PNEUMONIA [None]
  - POST PROCEDURAL COMPLICATION [None]
  - PULMONARY NECROSIS [None]
